FAERS Safety Report 8458763-4 (Version None)
Quarter: 2012Q2

REPORT INFORMATION
  Report Type: 
  Country: None (occurrence: None)
  Receive Date: 20120622
  Receipt Date: 20120612
  Transmission Date: 20120825
  Serious: Yes (Hospitalization, Other)
  Sender: FDA-Public Use
  Company Number: US-ELI_LILLY_AND_COMPANY-US201106008780

PATIENT
  Sex: Female

DRUGS (5)
  1. CALCIUM [Concomitant]
     Dosage: UNK
  2. MULTI-VITAMIN [Concomitant]
     Dosage: UNK
  3. FORTEO [Suspect]
     Indication: OSTEOPOROSIS
     Dosage: 20 UG, QD
     Route: 065
     Dates: start: 20110501
  4. FORTEO [Suspect]
     Dosage: 20 UG, QD
     Route: 065
     Dates: start: 20110501
  5. FOLIC ACID [Concomitant]
     Dosage: UNK

REACTIONS (4)
  - DRUG DOSE OMISSION [None]
  - HEAD INJURY [None]
  - FALL [None]
  - PNEUMONIA [None]
